FAERS Safety Report 15897622 (Version 1)
Quarter: 2019Q1

REPORT INFORMATION
  Report Type: Spontaneous
  Country: US (occurrence: US)
  Receive Date: 20190131
  Receipt Date: 20190131
  Transmission Date: 20190417
  Serious: No
  Sender: FDA-Public Use
  Company Number: US-JNJFOC-20190113015

PATIENT
  Sex: Female

DRUGS (2)
  1. XARELTO [Suspect]
     Active Substance: RIVAROXABAN
     Indication: PRODUCT USED FOR UNKNOWN INDICATION
     Route: 048
  2. TYLENOL COLD PLUS FLU PLUS COUGH DAY [Interacting]
     Active Substance: ACETAMINOPHEN\DEXTROMETHORPHAN HYDROBROMIDE\PHENYLEPHRINE HYDROCHLORIDE
     Indication: NASOPHARYNGITIS
     Route: 048
     Dates: start: 20190106

REACTIONS (4)
  - Nasopharyngitis [Unknown]
  - Feeling abnormal [Unknown]
  - Drug interaction [Unknown]
  - Insomnia [Unknown]

NARRATIVE: CASE EVENT DATE: 20190106
